FAERS Safety Report 20976192 (Version 1)
Quarter: 2022Q2

REPORT INFORMATION
  Report Type: Spontaneous
  Country: US (occurrence: None)
  Receive Date: 20220617
  Receipt Date: 20220617
  Transmission Date: 20220721
  Serious: No
  Sender: FDA-Public Use
  Company Number: None

PATIENT
  Age: 76 Year
  Sex: Male
  Weight: 86.59 kg

DRUGS (12)
  1. IBRANCE [Suspect]
     Active Substance: PALBOCICLIB
     Indication: Breast cancer female
     Dosage: OTHER FREQUENCY : 3W,1WOFF;?
     Route: 048
  2. AMOXICILLIN\CLAVULANATE POTASSIUM [Concomitant]
     Active Substance: AMOXICILLIN\CLAVULANATE POTASSIUM
  3. EYE VITAMINS [Concomitant]
  4. HYDROCODONE BITARTRATE ER [Concomitant]
  5. LETROZOLE [Concomitant]
  6. MULTI VITAMIN DAILY [Concomitant]
  7. OMEPRAZOLE [Concomitant]
  8. ONDANSETRON HCI [Concomitant]
  9. SENIOR VITAMIN [Concomitant]
  10. SIMVASTATIN [Concomitant]
  11. TYLENOL EXTRA STRENGTH [Concomitant]
  12. VITAMIN D [Concomitant]

REACTIONS (1)
  - Disease progression [None]
